FAERS Safety Report 9695242 (Version 1)
Quarter: 2013Q4

REPORT INFORMATION
  Report Type: Spontaneous
  Country: US (occurrence: US)
  Receive Date: 20131119
  Receipt Date: 20131119
  Transmission Date: 20140711
  Serious: Yes (Other)
  Sender: FDA-Public Use
  Company Number: US-TEVA-445058USA

PATIENT
  Age: 19 Year
  Sex: Female
  Weight: 49.94 kg

DRUGS (2)
  1. PARAGARD 380A [Suspect]
     Indication: CONTRACEPTION
     Route: 015
     Dates: start: 20121221, end: 20131113
  2. LEXAPRO [Concomitant]
     Indication: ANXIETY

REACTIONS (3)
  - Device dislocation [Recovered/Resolved]
  - Infection [Recovered/Resolved]
  - Abdominal pain [Recovered/Resolved]
